FAERS Safety Report 10045053 (Version 1)
Quarter: 2014Q1

REPORT INFORMATION
  Report Type: Spontaneous
  Country: US (occurrence: US)
  Receive Date: 20140328
  Receipt Date: 20140328
  Transmission Date: 20141002
  Serious: Yes (Hospitalization)
  Sender: FDA-Public Use
  Company Number: US-ELI_LILLY_AND_COMPANY-US201403006806

PATIENT
  Sex: Female
  Weight: 120.64 kg

DRUGS (4)
  1. HUMALOG LISPRO [Suspect]
     Indication: DIABETES MELLITUS
     Dosage: UNK, PRN
     Dates: start: 201309
  2. GLIPIZIDE [Concomitant]
  3. METFORMIN [Concomitant]
  4. LANTUS [Concomitant]
     Dosage: 31 U, EACH EVENING

REACTIONS (5)
  - Thrombosis [Unknown]
  - Weight decreased [Recovering/Resolving]
  - Intervertebral disc protrusion [Not Recovered/Not Resolved]
  - Back disorder [Unknown]
  - Incorrect product storage [Unknown]
